FAERS Safety Report 25454410 (Version 1)
Quarter: 2025Q2

REPORT INFORMATION
  Report Type: Spontaneous
  Country: IT (occurrence: IT)
  Receive Date: 20250619
  Receipt Date: 20250619
  Transmission Date: 20250716
  Serious: Yes (Hospitalization)
  Sender: AUROBINDO
  Company Number: IT-Accord-388790

PATIENT
  Age: 50 Year
  Sex: Female
  Weight: 48 kg

DRUGS (14)
  1. OXALIPLATIN [Suspect]
     Active Substance: OXALIPLATIN
     Indication: Colon cancer metastatic
     Route: 042
     Dates: start: 20231019
  2. FLUOROURACIL [Suspect]
     Active Substance: FLUOROURACIL
     Indication: Colon cancer metastatic
     Route: 042
     Dates: start: 20231019
  3. FLUOROURACIL [Suspect]
     Active Substance: FLUOROURACIL
     Route: 042
     Dates: start: 20231019
  4. CETUXIMAB [Suspect]
     Active Substance: CETUXIMAB
     Indication: Colon cancer metastatic
     Route: 042
     Dates: start: 20231019
  5. LEUCOVORIN CALCIUM [Suspect]
     Active Substance: LEUCOVORIN CALCIUM
     Indication: Colon cancer metastatic
     Route: 042
     Dates: start: 20231019
  6. LEVOTHYROXINE SODIUM [Concomitant]
     Active Substance: LEVOTHYROXINE SODIUM
     Indication: Hypothyroidism
     Route: 048
     Dates: start: 2019
  7. LORAZEPAM [Concomitant]
     Active Substance: LORAZEPAM
     Indication: Prophylaxis
     Route: 065
  8. BISOPROLOL [Concomitant]
     Active Substance: BISOPROLOL
     Indication: Cardiac failure
     Route: 065
  9. OXATOMIDE [Concomitant]
     Active Substance: OXATOMIDE
     Indication: Premedication
     Route: 048
     Dates: start: 20231019, end: 20231019
  10. METOCLOPRAMIDE [Concomitant]
     Active Substance: METOCLOPRAMIDE
     Indication: Nausea
     Route: 048
     Dates: start: 20231022, end: 20231023
  11. ESOMEPRAZOLE [Concomitant]
     Active Substance: ESOMEPRAZOLE
     Indication: Premedication
     Route: 065
     Dates: start: 20231019, end: 20231019
  12. ACETAMINOPHEN [Concomitant]
     Active Substance: ACETAMINOPHEN
     Indication: Pyrexia
     Route: 048
     Dates: start: 20231020, end: 20231020
  13. DEXAMETHASONE [Concomitant]
     Active Substance: DEXAMETHASONE
     Indication: Premedication
     Route: 065
     Dates: start: 20231019, end: 20231019
  14. GRANISETRON [Concomitant]
     Active Substance: GRANISETRON
     Indication: Premedication
     Route: 065
     Dates: start: 20231019, end: 20231019

REACTIONS (5)
  - Alanine aminotransferase increased [Recovered/Resolved with Sequelae]
  - Pain [Recovered/Resolved]
  - Pyrexia [Recovered/Resolved]
  - Transaminases increased [Recovered/Resolved with Sequelae]
  - Condition aggravated [Recovered/Resolved with Sequelae]

NARRATIVE: CASE EVENT DATE: 20231020
